FAERS Safety Report 22145986 (Version 1)
Quarter: 2023Q1

REPORT INFORMATION
  Report Type: Report from Study
  Country: US (occurrence: US)
  Receive Date: 20230328
  Receipt Date: 20230328
  Transmission Date: 20230417
  Serious: Yes (Other)
  Sender: FDA-Public Use
  Company Number: US-UCBSA-2023012302

PATIENT

DRUGS (6)
  1. MIDAZOLAM [Suspect]
     Active Substance: MIDAZOLAM
     Indication: Product used for unknown indication
     Dosage: 2.5 MILLIGRAM, SINGLE DOSE
     Route: 048
  2. MIDAZOLAM [Suspect]
     Active Substance: MIDAZOLAM
     Dosage: ON DAY 9 OF THE DDI PHASE, PATIENTS RE-EXPOSED TO MIDAZOLAM
     Route: 048
  3. CAPMATINIB [Suspect]
     Active Substance: CAPMATINIB
     Indication: Neoplasm
     Dosage: 400 MILLIGRAM, 2X/DAY (BID), FROM DAY 4 ON A CONTINUOUS DOSING SCHEDULE
     Route: 048
  4. CAPMATINIB [Suspect]
     Active Substance: CAPMATINIB
     Dosage: 400 MILLIGRAM, BID, ADMINISTERED ORALLY ON CONTINUOUS 21-DAY CYCLES
     Route: 048
  5. CAFFEINE [Suspect]
     Active Substance: CAFFEINE
     Indication: Product used for unknown indication
     Dosage: 100 MILLIGRAM
     Route: 048
  6. CAFFEINE [Suspect]
     Active Substance: CAFFEINE
     Dosage: ON DAY 9 OF THE DDI PHASE, PATIENTS RE-EXPOSED TO CAFFEINE
     Route: 048

REACTIONS (4)
  - Asthenia [Unknown]
  - Hyperlipasaemia [Unknown]
  - Blood alkaline phosphatase increased [Unknown]
  - Lipase increased [Unknown]
